FAERS Safety Report 6251016-4 (Version None)
Quarter: 2009Q2

REPORT INFORMATION
  Report Type: 
  Country: None (occurrence: None)
  Receive Date: 20090630
  Receipt Date: 20090618
  Transmission Date: 20091009
  Serious: No
  Sender: FDA-Public Use
  Company Number: US-BAYER-200924141NA

PATIENT
  Age: 49 Year
  Sex: Female
  Weight: 84 kg

DRUGS (1)
  1. MAGNEVIST [Suspect]
     Indication: ARTHROGRAM
     Dosage: TOTAL DAILY DOSE: 17 ML  UNIT DOSE: 10 ML
     Route: 042
     Dates: start: 20090609, end: 20090609

REACTIONS (7)
  - DIZZINESS [None]
  - DRY MOUTH [None]
  - NAUSEA [None]
  - RASH [None]
  - RETCHING [None]
  - SKIN WARM [None]
  - VOMITING [None]
